FAERS Safety Report 7291733-0 (Version None)
Quarter: 2011Q1

REPORT INFORMATION
  Report Type: 
  Country: None (occurrence: None)
  Receive Date: 20110209
  Receipt Date: 20110209
  Transmission Date: 20110831
  Serious: Yes (Other)
  Sender: FDA-Public Use
  Company Number: None

PATIENT
  Sex: Male
  Weight: 100.2449 kg

DRUGS (9)
  1. FLOMAX [Concomitant]
  2. VESICARE [Concomitant]
  3. NORVIR [Concomitant]
  4. REYATAZ [Suspect]
  5. EFFEXOR [Concomitant]
  6. VIREAD [Concomitant]
  7. EPZICOM [Suspect]
  8. LYRICA [Concomitant]
  9. SINGULAIR [Concomitant]

REACTIONS (2)
  - MEDICATION RESIDUE [None]
  - NEPHROLITHIASIS [None]
